FAERS Safety Report 9373144 (Version 1)
Quarter: 2013Q2

REPORT INFORMATION
  Report Type: Spontaneous
  Country: FR (occurrence: FR)
  Receive Date: 20130627
  Receipt Date: 20130627
  Transmission Date: 20140414
  Serious: Yes (Hospitalization)
  Sender: FDA-Public Use
  Company Number: FR-UCBSA-089593

PATIENT
  Age: 84 Year
  Sex: Female

DRUGS (5)
  1. LEVETIRACETAM [Suspect]
     Indication: GRAND MAL CONVULSION
     Dosage: UNKNOWN DOSE
  2. LEVETIRACETAM [Suspect]
     Indication: GRAND MAL CONVULSION
     Dosage: DAILY DOSE: 1000 MG
  3. LOPRAZOLAM [Concomitant]
     Indication: GRAND MAL CONVULSION
     Dosage: 1 MG DIALY
  4. FUROSEMIDE [Concomitant]
     Indication: GRAND MAL CONVULSION
     Dosage: 20 MG DAILY
  5. SODIUM VALPROATE [Concomitant]
     Indication: GRAND MAL CONVULSION
     Dosage: DAILY DOSE: 1000 MG

REACTIONS (1)
  - Encephalopathy [Recovering/Resolving]
